FAERS Safety Report 21888478 (Version 3)
Quarter: 2023Q2

REPORT INFORMATION
  Report Type: Report from Study
  Country: US (occurrence: US)
  Receive Date: 20230120
  Receipt Date: 20230401
  Transmission Date: 20230722
  Serious: No
  Sender: FDA-Public Use
  Company Number: US-002147023-NVSC2023US008622

PATIENT
  Sex: Female

DRUGS (1)
  1. KESIMPTA [Suspect]
     Active Substance: OFATUMUMAB
     Indication: Product used for unknown indication
     Dosage: UNK
     Route: 065

REACTIONS (9)
  - Chills [Unknown]
  - Malaise [Unknown]
  - Eye irritation [Unknown]
  - Myalgia [Unknown]
  - Fibromyalgia [Unknown]
  - Arthralgia [Unknown]
  - Pain [Unknown]
  - Pyrexia [Unknown]
  - Headache [Unknown]
